FAERS Safety Report 15918633 (Version 1)
Quarter: 2019Q1

REPORT INFORMATION
  Report Type: Spontaneous
  Country: ES (occurrence: ES)
  Receive Date: 20190205
  Receipt Date: 20190205
  Transmission Date: 20190417
  Serious: Yes (Other)
  Sender: FDA-Public Use
  Company Number: ES-EX USA HOLDINGS-EXHL20190047

PATIENT
  Age: 26 Year
  Sex: Female
  Weight: 41 kg

DRUGS (1)
  1. DROSBELALLE DIARIO [Suspect]
     Active Substance: DROSPIRENONE\ETHINYL ESTRADIOL
     Indication: ORAL CONTRACEPTION
     Dosage: 1 TABLET
     Route: 048
     Dates: start: 20181222

REACTIONS (2)
  - Gingival disorder [Not Recovered/Not Resolved]
  - Noninfective gingivitis [Not Recovered/Not Resolved]
